FAERS Safety Report 9308228 (Version 3)
Quarter: 2013Q2

REPORT INFORMATION
  Report Type: Spontaneous
  Country: JP (occurrence: JP)
  Receive Date: 20130524
  Receipt Date: 20130626
  Transmission Date: 20140414
  Serious: Yes (Death, Other)
  Sender: FDA-Public Use
  Company Number: JP-BAYER-2013-031568

PATIENT
  Age: 82 Year
  Sex: Male
  Weight: 49 kg

DRUGS (24)
  1. NEXAVAR [Suspect]
     Indication: RENAL CELL CARCINOMA
     Dosage: 400 MG, BID
     Route: 048
     Dates: start: 20130115, end: 20130121
  2. NEXAVAR [Suspect]
     Indication: HEPATOCELLULAR CARCINOMA
     Dosage: 400 MG, QOD
     Route: 048
     Dates: start: 20130125, end: 20130220
  3. NEXAVAR [Suspect]
     Indication: RENAL CELL CARCINOMA
     Dosage: 400 MG, QOD
     Dates: start: 20130222, end: 20130312
  4. NEXAVAR [Suspect]
     Indication: RENAL CELL CARCINOMA
     Dosage: 400 MG, QOD
     Route: 048
     Dates: start: 20130320, end: 20130411
  5. NU-LOTAN [Concomitant]
     Dosage: 50 MG, QD
     Route: 048
     Dates: start: 20130101, end: 20130113
  6. NU-LOTAN [Concomitant]
     Dosage: 50 MG, QD
     Dates: start: 20130117, end: 20130228
  7. NU-LOTAN [Concomitant]
     Dosage: 50 MG, QD
     Dates: start: 20130308, end: 20130418
  8. AMLODIPINE BESILATE [Concomitant]
     Dosage: 5 MG, QD
     Dates: start: 20130129, end: 20130228
  9. AMLODIPINE BESILATE [Concomitant]
     Dosage: 5 MG, QD
     Dates: start: 20130308, end: 20130418
  10. MACTASE [Concomitant]
     Dosage: UNK UNK, TID
     Route: 048
     Dates: start: 20130117, end: 20130228
  11. MACTASE [Concomitant]
     Dosage: DAILY DOSE 6 DF
     Dates: start: 20130308, end: 20130418
  12. FLIVAS [Concomitant]
     Dosage: 25 MG, QD
     Route: 048
     Dates: end: 20130110
  13. FLIVAS [Concomitant]
     Dosage: 25 MG, QD
     Dates: start: 20130209, end: 20130228
  14. FLIVAS [Concomitant]
     Dosage: 25 MG, QD
     Dates: start: 20130308, end: 20130418
  15. CIBENOL [Concomitant]
     Dosage: 100 MG, BID
     Route: 048
     Dates: end: 20130110
  16. CIBENOL [Concomitant]
     Dosage: 100 MG, BID
     Route: 048
     Dates: start: 20130208, end: 20130228
  17. CIBENOL [Concomitant]
     Dosage: UNK UNK, TID
     Route: 048
     Dates: start: 20130301, end: 20130314
  18. CIBENOL [Concomitant]
     Dosage: UNK, BID
     Route: 048
     Dates: start: 20130315, end: 20130418
  19. FRANDOL [Concomitant]
     Dosage: 40 MG, PRN
     Route: 062
  20. LOPEMIN [Concomitant]
     Dosage: UNK UNK, PRN
     Route: 048
     Dates: start: 20130117
  21. ADALAT [Concomitant]
     Dosage: UNK UNK, PRN
     Route: 048
     Dates: start: 20130118
  22. BISMUTH SUBGALLATE [Concomitant]
     Dosage: UNK
     Dates: start: 20130125
  23. FIBLAST [Concomitant]
     Dosage: UNK UNK, PRN
     Dates: start: 20130220
  24. RINDERON-VG [Concomitant]
     Dosage: UNK UNK, BID
     Route: 061
     Dates: start: 20130308

REACTIONS (13)
  - Cerebral haemorrhage [Fatal]
  - Depressed level of consciousness [Fatal]
  - Brain oedema [Fatal]
  - Musculoskeletal disorder [Fatal]
  - Peripheral coldness [Fatal]
  - White blood cell count decreased [Not Recovered/Not Resolved]
  - Platelet count decreased [Recovering/Resolving]
  - Haemoglobin decreased [Not Recovered/Not Resolved]
  - Neutrophil count decreased [Not Recovered/Not Resolved]
  - Pneumonia [Fatal]
  - Lung cancer metastatic [Fatal]
  - Renal cell carcinoma [Fatal]
  - Hepatocellular carcinoma [Fatal]
